FAERS Safety Report 5142686-2 (Version None)
Quarter: 2006Q4

REPORT INFORMATION
  Report Type: 
  Country: None (occurrence: None)
  Receive Date: 20061102
  Receipt Date: 20061016
  Transmission Date: 20070319
  Serious: Yes (Hospitalization, Other)
  Sender: FDA-Public Use
  Company Number: US-ABBOTT-06P-163-0346984-00

PATIENT
  Sex: Female

DRUGS (14)
  1. TARKA [Suspect]
     Indication: HYPERTENSION
     Dosage: 2/240
     Route: 048
     Dates: start: 20060925, end: 20061001
  2. BENECAR [Suspect]
     Indication: HYPERTENSION
     Route: 048
     Dates: start: 20060907
  3. DIURETICS [Concomitant]
     Indication: DRUG USE FOR UNKNOWN INDICATION
  4. CALCIUM + D [Concomitant]
     Indication: DRUG USE FOR UNKNOWN INDICATION
     Route: 048
  5. ASPIRIN [Concomitant]
     Indication: DRUG USE FOR UNKNOWN INDICATION
     Route: 048
  6. LEVOTHYROXINE SODIUM [Concomitant]
     Indication: HYPOTHYROIDISM
     Route: 048
  7. NISOLDIPINE [Concomitant]
     Indication: DRUG USE FOR UNKNOWN INDICATION
  8. CORTAF [Concomitant]
     Indication: DRUG USE FOR UNKNOWN INDICATION
  9. NIMENDA [Concomitant]
     Indication: DRUG USE FOR UNKNOWN INDICATION
  10. DONEPEZIL HYDROCHLORIDE [Concomitant]
     Indication: DEMENTIA ALZHEIMER'S TYPE
  11. FERRORENIDINE [Concomitant]
     Indication: DRUG USE FOR UNKNOWN INDICATION
  12. LEXAPRO [Concomitant]
     Indication: DRUG USE FOR UNKNOWN INDICATION
  13. QUETIAPINE [Concomitant]
     Indication: DRUG USE FOR UNKNOWN INDICATION
  14. CYPROHEPTADINE HYDROCHLORIDE [Concomitant]
     Indication: DRUG USE FOR UNKNOWN INDICATION

REACTIONS (3)
  - HYPOTENSION [None]
  - RENAL FAILURE [None]
  - SYNCOPE [None]
